FAERS Safety Report 18148041 (Version 1)
Quarter: 2020Q3

REPORT INFORMATION
  Report Type: Spontaneous
  Country: US (occurrence: US)
  Receive Date: 20200813
  Receipt Date: 20200813
  Transmission Date: 20201103
  Serious: Yes (Other)
  Sender: FDA-Public Use
  Company Number: US-CELGENEUS-USA-20200802620

PATIENT
  Age: 61 Year
  Sex: Male
  Weight: 72.64 kg

DRUGS (6)
  1. TYLENOL [Concomitant]
     Active Substance: ACETAMINOPHEN
     Indication: PAIN
     Route: 065
  2. ONDANSETRON [Concomitant]
     Active Substance: ONDANSETRON
     Indication: NAUSEA
     Route: 065
  3. REVLIMID [Suspect]
     Active Substance: LENALIDOMIDE
     Indication: PLASMA CELL MYELOMA
     Dosage: 25 MILLIGRAM
     Route: 048
     Dates: start: 20200721
  4. LORAZEPAM. [Concomitant]
     Active Substance: LORAZEPAM
     Indication: SLEEP DISORDER
     Route: 065
  5. REMERON [Concomitant]
     Active Substance: MIRTAZAPINE
     Indication: DEPRESSION
     Route: 065
  6. MORPHINE SULFATE. [Concomitant]
     Active Substance: MORPHINE SULFATE
     Indication: PAIN
     Route: 065

REACTIONS (1)
  - Thrombosis [Unknown]

NARRATIVE: CASE EVENT DATE: 20200728
